FAERS Safety Report 23549829 (Version 2)
Quarter: 2024Q2

REPORT INFORMATION
  Report Type: Report from Study
  Country: CO (occurrence: CO)
  Receive Date: 20240221
  Receipt Date: 20240405
  Transmission Date: 20240716
  Serious: Yes (Other)
  Sender: FDA-Public Use
  Company Number: CO-BAYER-2024A026819

PATIENT
  Sex: Male

DRUGS (2)
  1. EYLEA [Suspect]
     Active Substance: AFLIBERCEPT
     Indication: Retinal vein occlusion
     Dosage: 2 MG , MONTHLY FOR 3 MONTHS, AND THEN EVERY 2 MONTHS, SOL FOR INJ, 40MG/ML
     Route: 031
     Dates: start: 20220913, end: 20220913
  2. EYLEA [Suspect]
     Active Substance: AFLIBERCEPT
     Dosage: 2 MG, ~VIAL OF 40 MG/ML WITH AFLIBERCEPT, SOL FOR INJ, 40MG/ML
     Route: 031
     Dates: start: 20231109

REACTIONS (2)
  - Eye operation [Recovering/Resolving]
  - Vision blurred [Not Recovered/Not Resolved]

NARRATIVE: CASE EVENT DATE: 20240206
